FAERS Safety Report 26024232 (Version 1)
Quarter: 2025Q4

REPORT INFORMATION
  Report Type: Spontaneous
  Country: US (occurrence: US)
  Receive Date: 20251111
  Receipt Date: 20251111
  Transmission Date: 20260118
  Serious: Yes (Other)
  Sender: ACCORD
  Company Number: US-MLMSERVICE-20251024-PI686311-00065-2

PATIENT
  Age: 73 Year
  Sex: Female

DRUGS (6)
  1. BICALUTAMIDE [Suspect]
     Active Substance: BICALUTAMIDE
     Indication: Sweat gland tumour
  2. LEUPROLIDE [Suspect]
     Active Substance: LEUPROLIDE
     Indication: Sweat gland tumour
  3. LEUPROLIDE [Suspect]
     Active Substance: LEUPROLIDE
     Indication: Neuroendocrine carcinoma of the skin
  4. LEUPROLIDE [Suspect]
     Active Substance: LEUPROLIDE
     Indication: Metastases to lymph nodes
  5. BICALUTAMIDE [Suspect]
     Active Substance: BICALUTAMIDE
     Indication: Metastases to lymph nodes
  6. BICALUTAMIDE [Suspect]
     Active Substance: BICALUTAMIDE
     Indication: Neuroendocrine carcinoma of the skin

REACTIONS (2)
  - Invasive ductal breast carcinoma [Recovered/Resolved]
  - Off label use [Unknown]
